FAERS Safety Report 6010584-8 (Version None)
Quarter: 2008Q4

REPORT INFORMATION
  Report Type: 
  Country: None (occurrence: None)
  Receive Date: 20081218
  Receipt Date: 20081210
  Transmission Date: 20090506
  Serious: Yes (Hospitalization)
  Sender: FDA-Public Use
  Company Number: US-BIOGENIDEC-2008BI024810

PATIENT
  Age: 51 Year
  Sex: Male
  Weight: 85 kg

DRUGS (9)
  1. TYSABRI [Suspect]
     Indication: MULTIPLE SCLEROSIS
     Route: 042
     Dates: start: 20080305
  2. ACETAZOLAMIDE [Concomitant]
     Indication: ASTHENIA
     Dates: start: 20061122, end: 20080824
  3. LEXAPRO [Concomitant]
     Indication: DEPRESSION
     Dates: start: 20060831
  4. LIPITOR [Concomitant]
     Indication: HYPERCHOLESTEROLAEMIA
     Dates: start: 20061130
  5. TOPAMAX [Concomitant]
     Indication: AFFECTIVE DISORDER
     Dates: start: 20060419, end: 20080824
  6. TOPAMAX [Concomitant]
     Dates: start: 20080828
  7. PIROXICAM [Concomitant]
     Indication: PAIN
     Dates: start: 20050111
  8. RITALIN [Concomitant]
  9. RITALIN [Concomitant]

REACTIONS (2)
  - AFFECTIVE DISORDER [None]
  - SUICIDE ATTEMPT [None]
